FAERS Safety Report 6313614-9 (Version None)
Quarter: 2009Q3

REPORT INFORMATION
  Report Type: 
  Country: None (occurrence: None)
  Receive Date: 20090818
  Receipt Date: 20090717
  Transmission Date: 20100115
  Serious: Yes (Hospitalization)
  Sender: FDA-Public Use
  Company Number: DE-MERCK-0709DEU00823

PATIENT
  Age: 62 Year
  Sex: Male

DRUGS (10)
  1. ZOCOR [Suspect]
     Indication: PROPHYLAXIS
     Route: 048
     Dates: start: 20040101, end: 20060901
  2. RAMIPRIL [Concomitant]
     Indication: CARDIAC FAILURE
     Route: 065
     Dates: start: 20040101
  3. CARVEDILOL [Concomitant]
     Indication: CARDIAC FAILURE
     Route: 065
     Dates: start: 20040101
  4. TORSEMIDE [Concomitant]
     Indication: CARDIAC FAILURE
     Route: 065
     Dates: start: 20040101
  5. SPIRONOLACTONE [Concomitant]
     Indication: CARDIAC FAILURE
     Route: 065
     Dates: start: 20040101
  6. MOLSIDOMINE [Concomitant]
     Indication: CARDIAC FAILURE
     Route: 065
     Dates: start: 20050101
  7. ASPIRIN [Concomitant]
     Route: 065
     Dates: start: 20040101
  8. CLOPIDOGREL BISULFATE [Concomitant]
     Route: 065
     Dates: start: 20050101
  9. AMIODARONE [Suspect]
     Indication: VENTRICULAR TACHYCARDIA
     Route: 065
     Dates: start: 20040101
  10. DIGITOXIN [Suspect]
     Indication: CARDIAC FAILURE
     Route: 065
     Dates: start: 20060801

REACTIONS (2)
  - DRUG INTERACTION [None]
  - RHABDOMYOLYSIS [None]
